FAERS Safety Report 5087988-3 (Version None)
Quarter: 2006Q3

REPORT INFORMATION
  Report Type: 
  Country: None (occurrence: None)
  Receive Date: 20060727
  Receipt Date: 20060424
  Transmission Date: 20061208
  Serious: Yes (Other)
  Sender: FDA-Public Use
  Company Number: 2006058376

PATIENT
  Age: 49 Year
  Sex: Female
  Weight: 56.6996 kg

DRUGS (13)
  1. LYRICA [Suspect]
     Indication: NEURALGIA
     Dosage: 150 MG (75 MG,2 IN 1 D),ORAL
     Route: 048
     Dates: start: 20050801
  2. METHADONE HCL [Suspect]
     Indication: PAIN
     Dosage: 15 MG (5 MG,3 IN 1 D),ORAL
     Route: 048
  3. FIORICET [Suspect]
     Indication: PAIN
     Dosage: (PRN),ORAL
     Route: 048
  4. KLONOPIN [Suspect]
     Indication: INSOMNIA
     Dosage: (0.25 MG,PRN),ORAL
     Route: 048
  5. ROBAXIN [Suspect]
     Indication: PAIN
     Dosage: (PRN),ORAL
     Route: 048
  6. PARNATE [Suspect]
     Indication: DEPRESSION
     Dosage: ORAL
     Route: 048
  7. ACYCLOVIR [Concomitant]
  8. CALCIUM (CALCIUM) [Concomitant]
  9. FOSAMAX [Concomitant]
  10. DEMULEN (ETHINYLESTRADIOL, ETYNODIOL DIACETATE) [Concomitant]
  11. SURFAK (DOCUSATE SODIUM) [Concomitant]
  12. NEXIUM [Concomitant]
  13. THERA TEARS (CARMELLOSE) [Concomitant]

REACTIONS (9)
  - ALTERED VISUAL DEPTH PERCEPTION [None]
  - DIZZINESS [None]
  - DRUG INTERACTION [None]
  - DYSARTHRIA [None]
  - PAIN [None]
  - SEDATION [None]
  - SPEECH DISORDER [None]
  - VISUAL DISTURBANCE [None]
  - WEIGHT INCREASED [None]
